FAERS Safety Report 8729864 (Version 10)
Quarter: 2013Q3

REPORT INFORMATION
  Report Type: Report from Study
  Country: FR (occurrence: FR)
  Receive Date: 20120817
  Receipt Date: 20130722
  Transmission Date: 20140515
  Serious: Yes (Hospitalization)
  Sender: FDA-Public Use
  Company Number: FR-TEVA-353881USA

PATIENT
  Age: 79 Year
  Sex: Female
  Weight: 60 kg

DRUGS (12)
  1. BENDAMUSTINE [Suspect]
     Dosage: 284 MILLIGRAM DAILY;
     Route: 042
     Dates: start: 20120606
  2. BENDAMUSTINE [Suspect]
     Dosage: UID/QD
     Route: 042
     Dates: start: 20120910, end: 20120924
  3. RITUXIMAB [Suspect]
     Dosage: 810 MILLIGRAM DAILY;
     Route: 042
     Dates: start: 20120606, end: 20120924
  4. ACENOCOUMAROL [Concomitant]
     Dates: start: 20120804, end: 20120906
  5. TRINITRINE [Concomitant]
  6. KARDEGIC [Concomitant]
     Dates: start: 20120606
  7. ASPEGIC [Concomitant]
     Dates: start: 20120806
  8. ALLORIL [Concomitant]
  9. TEMERIT [Concomitant]
  10. ZESTRIL [Concomitant]
  11. PRAXADA [Concomitant]
     Dates: start: 20120804, end: 20120813
  12. NITROGLYCERIN [Concomitant]

REACTIONS (1)
  - Arrhythmia [Recovered/Resolved]
